FAERS Safety Report 7245453-9 (Version None)
Quarter: 2011Q1

REPORT INFORMATION
  Report Type: 
  Country: None (occurrence: None)
  Receive Date: 20110126
  Receipt Date: 20110120
  Transmission Date: 20110831
  Serious: Yes (Other)
  Sender: FDA-Public Use
  Company Number: PHHY2008IN37367

PATIENT
  Sex: Male

DRUGS (1)
  1. SIMULECT [Suspect]
     Dosage: UNK
     Dates: start: 20080717

REACTIONS (1)
  - TRANSPLANT REJECTION [None]
